FAERS Safety Report 10203695 (Version 1)
Quarter: 2014Q2

REPORT INFORMATION
  Report Type: Spontaneous
  Country: US (occurrence: None)
  Receive Date: 20140523
  Receipt Date: 20140523
  Transmission Date: 20141212
  Serious: No
  Sender: FDA-Public Use
  Company Number: 2014P1004136

PATIENT
  Age: 21 Year
  Sex: Female

DRUGS (2)
  1. MYORISAN [Suspect]
     Indication: ACNE
     Dates: start: 20140122, end: 20140506
  2. ADDERALL [Suspect]
     Dates: end: 20140501

REACTIONS (10)
  - Dry skin [None]
  - Alopecia [None]
  - Mood swings [None]
  - Emotional disorder [None]
  - Anxiety [None]
  - Paranoia [None]
  - Back pain [None]
  - Somnolence [None]
  - Depression [None]
  - Disturbance in attention [None]
